FAERS Safety Report 10367765 (Version 1)
Quarter: 2014Q1

REPORT INFORMATION
  Report Type: Spontaneous
  Country: US (occurrence: None)
  Receive Date: 20140306
  Receipt Date: 20140306
  Transmission Date: 20141002
  Serious: Yes (Hospitalization, Disabling)
  Sender: FDA-Public Use
  Company Number: 163-21880-12110679

PATIENT
  Sex: Male
  Weight: 82.1 kg

DRUGS (5)
  1. REVLIMID (LENALIDOMIDE) (25 MILLIGRAM, CAPSULES) [Suspect]
     Indication: PLASMA CELL MYELOMA
     Route: 048
     Dates: start: 20100510, end: 201007
  2. CISPLATIN (CISPLATIN) (UNKNOWN) [Concomitant]
  3. CYTOXAN (CYCLOPHOSPHAMIDE) (UNKNOWN) [Concomitant]
  4. ETOPOSIDE (ETOPOSIDE) (UNKNOWN) [Concomitant]
  5. PERTUZUMAB (PERTUZUMAB) (UNKNOWN) [Concomitant]

REACTIONS (4)
  - Plasma cell myeloma [None]
  - Protein total increased [None]
  - Sinus disorder [None]
  - Pyrexia [None]
